FAERS Safety Report 25960423 (Version 1)
Quarter: 2025Q4

REPORT INFORMATION
  Report Type: Report from Study
  Country: EU (occurrence: EU)
  Receive Date: 20251027
  Receipt Date: 20251027
  Transmission Date: 20260117
  Serious: Yes (Death, Hospitalization)
  Sender: ABBVIE
  Company Number: EU-ABBVIE-6518784

PATIENT
  Age: 66 Year
  Sex: Male

DRUGS (1)
  1. FOSCARBIDOPA\FOSLEVODOPA [Suspect]
     Active Substance: FOSCARBIDOPA\FOSLEVODOPA
     Indication: Parkinson^s disease
     Dosage: DAILY DOSE: 2.688 MG/DAY, CRL: 0.43ML/HR, CRB: 0.46ML/HR, CRH: 0.48ML/HR, ED: 0.2ML LD: 0,8ML
     Route: 058
     Dates: start: 20240626

REACTIONS (3)
  - Sepsis [Fatal]
  - Urinary tract infection [Unknown]
  - Pneumonia [Unknown]

NARRATIVE: CASE EVENT DATE: 20250101
